FAERS Safety Report 9422941 (Version 2)
Quarter: 2013Q3

REPORT INFORMATION
  Report Type: Spontaneous
  Country: DK (occurrence: DK)
  Receive Date: 20130726
  Receipt Date: 20130904
  Transmission Date: 20140515
  Serious: Yes (Hospitalization)
  Sender: FDA-Public Use
  Company Number: DK-ACTAVIS-2013-13056

PATIENT
  Age: 57 Year
  Sex: Female

DRUGS (6)
  1. PACLITAXEL (UNKNOWN) [Suspect]
     Indication: OVARIAN CANCER
     Dosage: 282 MG, UNKNOWN
     Route: 042
     Dates: start: 20130516
  2. CARBOPLATIN (UNKNOWN) [Suspect]
     Indication: OVARIAN CANCER
     Dosage: 395 MG, UNKNOWN
     Route: 042
     Dates: start: 20130516
  3. BEVACIZUMAB [Concomitant]
     Indication: OVARIAN CANCER
     Dosage: 825 MG, UNKNOWN
     Route: 065
     Dates: start: 20130516
  4. VOGALENE [Concomitant]
     Indication: HYPOTENSION
     Dosage: UNK, UNKNOWN
     Route: 065
  5. VOGALENE [Concomitant]
     Indication: ANTIEMETIC SUPPORTIVE CARE
  6. CORODIL                            /00042901/ [Concomitant]
     Indication: HYPERTENSION
     Dosage: 5 MG, UNKNOWN
     Route: 065
     Dates: start: 20130516

REACTIONS (1)
  - Hyponatraemia [Recovering/Resolving]
